FAERS Safety Report 25284200 (Version 1)
Quarter: 2025Q2

REPORT INFORMATION
  Report Type: Spontaneous
  Country: ID (occurrence: ID)
  Receive Date: 20250508
  Receipt Date: 20250508
  Transmission Date: 20250717
  Serious: Yes (Life-Threatening, Hospitalization)
  Sender: Alora Pharma
  Company Number: ID-ACELLA PHARMACEUTICALS, LLC-2025ALO02201

PATIENT
  Age: 72 Year
  Sex: Female

DRUGS (2)
  1. AMIODARONE HYDROCHLORIDE [Suspect]
     Active Substance: AMIODARONE HYDROCHLORIDE
     Indication: Ventricular tachycardia
     Dosage: 600 MG, 2X/DAY
     Dates: start: 20240108, end: 20240109
  2. CANDESARTAN [Concomitant]
     Active Substance: CANDESARTAN
     Indication: Hypertension
     Dates: start: 2022

REACTIONS (1)
  - Long QT syndrome congenital [Recovered/Resolved]
